FAERS Safety Report 5244368-5 (Version None)
Quarter: 2007Q1

REPORT INFORMATION
  Report Type: 
  Country: None (occurrence: None)
  Receive Date: 20070222
  Receipt Date: 20070214
  Transmission Date: 20070707
  Serious: Yes (Hospitalization, Other)
  Sender: FDA-Public Use
  Company Number: JP-JNJFOC-20060700320

PATIENT
  Sex: Female
  Weight: 57 kg

DRUGS (17)
  1. REMICADE [Suspect]
     Route: 042
  2. REMICADE [Suspect]
     Dosage: DOSE NUMBER 4-8 GIVEN ON UNSPECIFIED DATES.
     Route: 042
  3. REMICADE [Suspect]
     Dosage: DOSE NUMBER 4-8 GIVEN ON UNSPECIFIED DATES.
     Route: 042
  4. REMICADE [Suspect]
     Dosage: DOSE NUMBER 4-8 GIVEN ON UNSPECIFIED DATES.
     Route: 042
  5. REMICADE [Suspect]
     Dosage: DOSE NUMBER 4-8 GIVEN ON UNSPECIFIED DATES.
     Route: 042
  6. REMICADE [Suspect]
     Dosage: DOSE NUMBER 4-8 GIVEN ON UNSPECIFIED DATES.
     Route: 042
  7. REMICADE [Suspect]
     Route: 042
  8. REMICADE [Suspect]
     Route: 042
  9. REMICADE [Suspect]
     Indication: RHEUMATOID ARTHRITIS
     Route: 042
  10. METOLATE [Concomitant]
     Indication: RHEUMATOID ARTHRITIS
     Route: 048
  11. ALESION [Concomitant]
     Indication: PREMEDICATION
     Dosage: 1 TAB
     Route: 048
  12. ADRENAL HORMONE PREPARATIONS [Concomitant]
     Indication: RHEUMATOID ARTHRITIS
  13. PREDONINE [Concomitant]
     Indication: RHEUMATOID ARTHRITIS
     Route: 048
  14. RIMATIL [Concomitant]
     Indication: RHEUMATOID ARTHRITIS
     Route: 048
  15. MUCOSTA [Concomitant]
     Indication: RHEUMATOID ARTHRITIS
     Route: 048
  16. DEPAS [Concomitant]
     Route: 048
  17. ALFAROL [Concomitant]
     Route: 048

REACTIONS (9)
  - BACK PAIN [None]
  - CHEST PAIN [None]
  - CHILLS [None]
  - HYPERHIDROSIS [None]
  - HYPOXIA [None]
  - INFUSION RELATED REACTION [None]
  - NAUSEA [None]
  - PALPITATIONS [None]
  - VOMITING [None]
